FAERS Safety Report 8804884 (Version 1)
Quarter: 2012Q4

REPORT INFORMATION
  Report Type: 
  Country: US (occurrence: US)
  Receive Date: 20120924
  Receipt Date: 20120924
  Transmission Date: 20130627
  Serious: No
  Sender: FDA-Public Use
  Company Number: US-ALLERGAN-1116791US

PATIENT
  Sex: Female

DRUGS (1)
  1. AZELEX [Suspect]
     Indication: ACNE
     Dosage: UNK
     Route: 061

REACTIONS (1)
  - Rash papular [Not Recovered/Not Resolved]
